FAERS Safety Report 6026368-0 (Version None)
Quarter: 2009Q1

REPORT INFORMATION
  Report Type: 
  Country: None (occurrence: None)
  Receive Date: 20090102
  Receipt Date: 20081223
  Transmission Date: 20090719
  Serious: Yes (Death, Hospitalization)
  Sender: FDA-Public Use
  Company Number: PHHY2008US13326

PATIENT
  Sex: Male

DRUGS (20)
  1. CLOZARIL [Suspect]
     Indication: SCHIZOPHRENIA
     Dosage: 500 MG / DAY
     Route: 048
  2. DOCUSATE [Concomitant]
  3. ACETAMINOPHEN [Concomitant]
  4. SIMETHICONE [Concomitant]
  5. BENADRYL [Concomitant]
  6. INSULIN HUMULIN [Concomitant]
     Indication: DIABETES MELLITUS
     Dosage: 25/6, AM/PM
     Route: 058
  7. NOVOLIN [Concomitant]
  8. ASCORBIC ACID [Concomitant]
  9. AMBIEN [Concomitant]
  10. ATIVAN [Concomitant]
  11. NEURONTIN [Concomitant]
  12. GLYCOLAX [Concomitant]
  13. OXCARBAZEPINE [Concomitant]
  14. HALDOL [Concomitant]
     Dosage: 2 MG, BID
     Route: 048
  15. OMEPRAZOLE [Concomitant]
  16. FLUTICASONE PROPIONATE [Concomitant]
  17. FERROUS SULPHATE [Concomitant]
  18. PREVACID [Concomitant]
     Indication: GASTROOESOPHAGEAL REFLUX DISEASE
     Dosage: 30 MG, UNK
     Route: 048
  19. TRILEPTAL [Concomitant]
     Indication: SEIZURE ANOXIC
     Dosage: 750 MG, BID
     Route: 048
  20. GABAPENTIN [Concomitant]
     Indication: CONVULSION
     Route: 048

REACTIONS (6)
  - CARDIAC ARREST [None]
  - DIABETES MELLITUS [None]
  - RENAL FAILURE [None]
  - SEPSIS [None]
  - URINARY TRACT INFECTION [None]
  - WHITE BLOOD CELL COUNT INCREASED [None]
